FAERS Safety Report 8128266-5 (Version None)
Quarter: 2012Q1

REPORT INFORMATION
  Report Type: 
  Country: None (occurrence: None)
  Receive Date: 20120210
  Receipt Date: 20120126
  Transmission Date: 20120608
  Serious: Yes (Hospitalization)
  Sender: FDA-Public Use
  Company Number: CA-JNJFOC-20120200826

PATIENT
  Age: 62 Year
  Sex: Female
  Weight: 62 kg

DRUGS (15)
  1. REMICADE [Suspect]
     Route: 042
     Dates: start: 20111116, end: 20111116
  2. DULCOLAX [Concomitant]
     Route: 065
  3. ASPIRIN [Concomitant]
     Route: 065
  4. ESCITALOPRAM [Concomitant]
     Route: 065
  5. REMICADE [Suspect]
     Indication: SPINAL COLUMN STENOSIS
     Route: 042
     Dates: start: 20091013
  6. ESTRACE [Concomitant]
     Route: 065
  7. REMICADE [Suspect]
     Indication: ARTHRITIS
     Route: 042
     Dates: start: 20091013
  8. REMICADE [Suspect]
     Route: 042
     Dates: start: 20111116, end: 20111116
  9. PERINDOPRIL ERBUMINE [Concomitant]
     Route: 065
  10. ATIVAN [Concomitant]
     Route: 048
  11. ACETAMINOPHEN [Concomitant]
     Route: 065
  12. VITAMIN D [Concomitant]
     Route: 065
  13. MESALAMINE [Concomitant]
     Route: 065
  14. CALCIUM CARBONATE/MAGNESIUM HYDROXIDE/SIMETICONE [Concomitant]
     Dosage: 200-2
     Route: 065
  15. DICETEL [Concomitant]
     Route: 065

REACTIONS (2)
  - PANCREATITIS ACUTE [None]
  - HEPATIC CYST [None]
